FAERS Safety Report 17456298 (Version 2)
Quarter: 2020Q1

REPORT INFORMATION
  Report Type: Report from Study
  Country: TW (occurrence: TW)
  Receive Date: 20200225
  Receipt Date: 20200312
  Transmission Date: 20200409
  Serious: Yes (Other)
  Sender: FDA-Public Use
  Company Number: TW-UCBSA-2020006935

PATIENT
  Age: 0 Day
  Sex: Male
  Weight: 2.67 kg

DRUGS (6)
  1. PREDNISOLONE. [Concomitant]
     Active Substance: PREDNISOLONE
     Indication: RHEUMATOID ARTHRITIS
  2. CERTOLIZUMAB PEGOL [Suspect]
     Active Substance: CERTOLIZUMAB PEGOL
     Indication: RHEUMATOID ARTHRITIS
     Dosage: 400 MILLIGRAM, MONTHLY (QM)
     Route: 064
     Dates: start: 2019, end: 20191225
  3. ENOXAPARIN [Concomitant]
     Active Substance: ENOXAPARIN
     Indication: IN VITRO FERTILISATION
  4. SILYMARINE [Concomitant]
     Indication: ALANINE AMINOTRANSFERASE
  5. IRON [Concomitant]
     Active Substance: IRON
     Indication: PREGNANCY
  6. CERTOLIZUMAB PEGOL [Suspect]
     Active Substance: CERTOLIZUMAB PEGOL
     Dosage: 400 MILLIGRAM, MONTHLY (QM)
     Route: 063
     Dates: start: 20191225

REACTIONS (3)
  - Premature baby [Unknown]
  - Exposure via breast milk [Unknown]
  - Maternal exposure before pregnancy [Unknown]

NARRATIVE: CASE EVENT DATE: 20191225
